FAERS Safety Report 11322182 (Version 2)
Quarter: 2016Q1

REPORT INFORMATION
  Report Type: Spontaneous
  Country: DK (occurrence: DK)
  Receive Date: 20150729
  Receipt Date: 20160205
  Transmission Date: 20160525
  Serious: No
  Sender: FDA-Public Use
  Company Number: DK-ALLERGAN-1514273US

PATIENT
  Age: 11 Year
  Sex: Female
  Weight: 19 kg

DRUGS (2)
  1. BOTOX [Suspect]
     Active Substance: ONABOTULINUMTOXINA
     Indication: SCOLIOSIS
     Dosage: 17.0 UNITS/KG
     Route: 030
  2. PROPOFOL. [Concomitant]
     Active Substance: PROPOFOL
     Indication: GENERAL ANAESTHESIA

REACTIONS (2)
  - Off label use [Unknown]
  - Drug ineffective [Unknown]
